FAERS Safety Report 19402478 (Version 8)
Quarter: 2023Q1

REPORT INFORMATION
  Report Type: Spontaneous
  Country: LT (occurrence: LT)
  Receive Date: 20210610
  Receipt Date: 20230302
  Transmission Date: 20230417
  Serious: Yes (Hospitalization, Other)
  Sender: FDA-Public Use
  Company Number: NVSC2021LT129156

PATIENT
  Age: 21 Year
  Sex: Male

DRUGS (43)
  1. TRIHEXYPHENIDYL [Suspect]
     Active Substance: TRIHEXYPHENIDYL
     Indication: Psychotic symptom
     Dosage: 4 MILLIGRAM, QD, 1ST DAY TO 32ND DAY
     Route: 065
  2. TRIHEXYPHENIDYL [Suspect]
     Active Substance: TRIHEXYPHENIDYL
     Indication: Extrapyramidal disorder
     Dosage: 4 MILLIGRAM, QD, 35TH DAY
     Route: 065
  3. TRIHEXYPHENIDYL [Suspect]
     Active Substance: TRIHEXYPHENIDYL
     Indication: Psychomotor hyperactivity
     Dosage: 6 MILLIGRAM, QD, 39TH DAY
     Route: 048
  4. TRIHEXYPHENIDYL [Suspect]
     Active Substance: TRIHEXYPHENIDYL
     Indication: Aggression
     Dosage: 8 MILLIGRAM, QD, 42ND DAY
     Route: 065
  5. TRIHEXYPHENIDYL [Suspect]
     Active Substance: TRIHEXYPHENIDYL
     Indication: Persecutory delusion
  6. CARBAMAZEPINE [Suspect]
     Active Substance: CARBAMAZEPINE
     Indication: Psychotic symptom
     Dosage: 300 MILLIGRAM, QD, 11TH DAY
     Route: 048
  7. CARBAMAZEPINE [Suspect]
     Active Substance: CARBAMAZEPINE
     Indication: Persecutory delusion
     Dosage: 600 MILLIGRAM, QD, 14TH DAY
     Route: 048
  8. CARBAMAZEPINE [Suspect]
     Active Substance: CARBAMAZEPINE
     Indication: Abnormal behaviour
     Dosage: 900 MILLIGRAM, QD, 16TH DAY
     Route: 048
  9. CARBAMAZEPINE [Suspect]
     Active Substance: CARBAMAZEPINE
     Indication: Psychotic disorder
  10. DIAZEPAM [Suspect]
     Active Substance: DIAZEPAM
     Indication: Psychotic symptom
     Dosage: 15 MILLIGRAM, QD, 36TH DAY TO 42ND DAY
     Route: 048
  11. DIAZEPAM [Suspect]
     Active Substance: DIAZEPAM
     Indication: Psychomotor hyperactivity
     Dosage: 15 MILLIGRAM, QD, 1ST DAY TO 32ND DAY
     Route: 048
  12. DIAZEPAM [Suspect]
     Active Substance: DIAZEPAM
     Indication: Persecutory delusion
  13. DIAZEPAM [Suspect]
     Active Substance: DIAZEPAM
     Indication: Aggression
  14. DIAZEPAM [Suspect]
     Active Substance: DIAZEPAM
     Indication: Psychotic symptom
  15. OLANZAPINE [Suspect]
     Active Substance: OLANZAPINE
     Indication: Psychotic symptom
     Dosage: 20 MILLIGRAM, QD, 8TH HOSPITALISATION DAY
     Route: 048
  16. OLANZAPINE [Suspect]
     Active Substance: OLANZAPINE
     Indication: Behaviour disorder
     Dosage: 15 MILLIGRAM, QD, 35TH DAY
     Route: 048
  17. OLANZAPINE [Suspect]
     Active Substance: OLANZAPINE
     Indication: Delusion
     Dosage: UNK
     Route: 065
  18. OLANZAPINE [Suspect]
     Active Substance: OLANZAPINE
     Indication: Abnormal behaviour
  19. OLANZAPINE [Suspect]
     Active Substance: OLANZAPINE
     Indication: Persecutory delusion
  20. HALOPERIDOL [Suspect]
     Active Substance: HALOPERIDOL
     Indication: Psychotic symptom
     Dosage: 20 MG, QD (36TH TO 42ND DAY)
     Route: 065
  21. HALOPERIDOL [Suspect]
     Active Substance: HALOPERIDOL
     Indication: Psychomotor hyperactivity
     Dosage: 1ST TO 23TH DAY
     Route: 065
  22. HALOPERIDOL [Suspect]
     Active Substance: HALOPERIDOL
     Indication: Persecutory delusion
     Dosage: UNK
     Route: 065
  23. HALOPERIDOL [Suspect]
     Active Substance: HALOPERIDOL
     Indication: Aggression
  24. CLEMASTINE [Suspect]
     Active Substance: CLEMASTINE
     Indication: Viral infection
     Dosage: 2 MG, QD  (20TH TO 39TH DAY)
     Route: 048
  25. AMOXICILLIN [Concomitant]
     Active Substance: AMOXICILLIN
     Indication: Antibiotic therapy
     Dosage: 1500 MG, QD, 14TH TO 20TH DAY
     Route: 048
  26. AMOXICILLIN [Concomitant]
     Active Substance: AMOXICILLIN
     Indication: Inflammatory marker increased
  27. AMOXICILLIN [Concomitant]
     Active Substance: AMOXICILLIN
     Indication: Oropharyngeal pain
  28. AMOXICILLIN [Concomitant]
     Active Substance: AMOXICILLIN
     Indication: Oral mucosal eruption
  29. CEFUROXIME [Concomitant]
     Active Substance: CEFUROXIME
     Indication: Sinusitis
     Dosage: 4.5 G, QD,22ND DAY TO 39TH DAY
     Route: 042
  30. CEFUROXIME [Concomitant]
     Active Substance: CEFUROXIME
     Indication: Inflammatory marker increased
  31. ANTIHEMOPHILIC FACTOR HUMAN [Concomitant]
     Active Substance: ANTIHEMOPHILIC FACTOR HUMAN
     Indication: Haemophilia
     Dosage: 1000 IU,28TH DAY
     Route: 042
  32. ANTIHEMOPHILIC FACTOR HUMAN [Concomitant]
     Active Substance: ANTIHEMOPHILIC FACTOR HUMAN
     Indication: Prophylaxis
  33. CIPROFLOXACIN [Concomitant]
     Active Substance: CIPROFLOXACIN
     Indication: Rash
     Dosage: 400 MG, QD, 31ST DAY
     Route: 048
  34. CIPROFLOXACIN [Concomitant]
     Active Substance: CIPROFLOXACIN
     Indication: Inflammatory marker increased
     Dosage: 800 MG, QD (35TH TO 39TH DAY)
     Route: 042
  35. CIPROFLOXACIN [Concomitant]
     Active Substance: CIPROFLOXACIN
     Dosage: 400 MG
     Route: 042
  36. IBUPROFEN [Concomitant]
     Active Substance: IBUPROFEN
     Indication: Pyrexia
     Dosage: 400 MG, QD
     Route: 042
  37. IBUPROFEN [Concomitant]
     Active Substance: IBUPROFEN
     Dosage: 400 MG, QD (31ST DAY)
     Route: 048
  38. LORATADINE [Concomitant]
     Active Substance: LORATADINE
     Indication: Dermatitis allergic
     Dosage: 10 MG/D (31TH DAY-32ND DAY)
     Route: 065
  39. LORATADINE [Concomitant]
     Active Substance: LORATADINE
     Indication: Rash
     Dosage: 20 MG, QD, 32ND DAY TO 39TH DAY
     Route: 048
  40. DEXAMETHASONE [Concomitant]
     Active Substance: DEXAMETHASONE
     Indication: Dermatitis allergic
     Dosage: 12 MG, QD, 32ND TO 39TH DAY
     Route: 042
  41. DEXAMETHASONE [Concomitant]
     Active Substance: DEXAMETHASONE
     Indication: Rash
  42. QUETIAPINE [Concomitant]
     Active Substance: QUETIAPINE
     Indication: Psychotic symptom
     Dosage: 300 MG, QD, 42ND DAY
     Route: 048
  43. QUETIAPINE [Concomitant]
     Active Substance: QUETIAPINE
     Dosage: 500 MG, QD, 43RD DAY
     Route: 048

REACTIONS (9)
  - Drug reaction with eosinophilia and systemic symptoms [Recovered/Resolved]
  - Extrapyramidal disorder [Recovered/Resolved]
  - Drug ineffective [Unknown]
  - Product use in unapproved indication [Unknown]
  - Hepatic enzyme increased [Not Recovered/Not Resolved]
  - Acute hepatic failure [Unknown]
  - Pyrexia [Unknown]
  - Splenomegaly [Unknown]
  - Lymphadenopathy [Unknown]
